FAERS Safety Report 10998095 (Version 1)
Quarter: 2015Q2

REPORT INFORMATION
  Report Type: Spontaneous
  Country: US (occurrence: None)
  Receive Date: 20150407
  Receipt Date: 20150407
  Transmission Date: 20150821
  Serious: Yes (Other)
  Sender: FDA-Public Use
  Company Number: None

PATIENT
  Age: 55 Year
  Sex: Male
  Weight: 113.4 kg

DRUGS (6)
  1. NACIN [Concomitant]
  2. ENTERIC ASPIRN [Concomitant]
  3. FISH OIL [Concomitant]
     Active Substance: FISH OIL
  4. ADDERALL [Suspect]
     Active Substance: AMPHETAMINE ASPARTATE\AMPHETAMINE SULFATE\DEXTROAMPHETAMINE SACCHARATE\DEXTROAMPHETAMINE SULFATE
     Indication: ATTENTION DEFICIT/HYPERACTIVITY DISORDER
     Dosage: 100 PILLS
     Route: 048
     Dates: start: 20150403, end: 20150406
  5. COZAR-LOSARTAN [Concomitant]
  6. CENTRUM MULTI VITAMIN OVER 50 [Concomitant]

REACTIONS (3)
  - Disturbance in attention [None]
  - Unevaluable event [None]
  - Headache [None]

NARRATIVE: CASE EVENT DATE: 20150406
